FAERS Safety Report 16682339 (Version 1)
Quarter: 2019Q3

REPORT INFORMATION
  Report Type: Spontaneous
  Country: US (occurrence: US)
  Receive Date: 20190808
  Receipt Date: 20190808
  Transmission Date: 20191004
  Serious: Yes (Other)
  Sender: FDA-Public Use
  Company Number: US-BAYER-2019-146971

PATIENT
  Sex: Female

DRUGS (1)
  1. CIPRO [Suspect]
     Active Substance: CIPROFLOXACIN HYDROCHLORIDE
     Dosage: UNK
     Dates: start: 201905

REACTIONS (4)
  - Bladder pain [None]
  - White blood cells urine positive [None]
  - Atrophic vulvovaginitis [None]
  - Pain in extremity [None]

NARRATIVE: CASE EVENT DATE: 2019
